FAERS Safety Report 8494856-3 (Version None)
Quarter: 2012Q3

REPORT INFORMATION
  Report Type: 
  Country: None (occurrence: None)
  Receive Date: 20120709
  Receipt Date: 20120704
  Transmission Date: 20120928
  Serious: Yes (Hospitalization)
  Sender: FDA-Public Use
  Company Number: IT-PFIZER INC-2012161067

PATIENT
  Age: 61 Year
  Sex: Male

DRUGS (4)
  1. PLAQUENIL [Suspect]
     Indication: MYALGIA
     Dosage: 2 DF, DAILY
     Dates: start: 20120530, end: 20120628
  2. FLEXAGIL [Concomitant]
     Dosage: UNK
  3. PREDNISONE TAB [Concomitant]
     Dosage: UNK
  4. CARDURA [Suspect]
     Indication: HYPERTENSION
     Dosage: 4 MG, DAILY
     Dates: start: 20120624, end: 20120629

REACTIONS (1)
  - ERYTHEMA MULTIFORME [None]
